FAERS Safety Report 11525398 (Version 2)
Quarter: 2015Q3

REPORT INFORMATION
  Report Type: Spontaneous
  Country: US (occurrence: US)
  Receive Date: 20150918
  Receipt Date: 20150923
  Transmission Date: 20151125
  Serious: Yes (Hospitalization)
  Sender: FDA-Public Use
  Company Number: US-JNJFOC-20150907852

PATIENT

DRUGS (2)
  1. RISPERDAL CONSTA [Suspect]
     Active Substance: RISPERIDONE
     Indication: SCHIZOPHRENIA
     Route: 030
  2. RISPERIDONE. [Suspect]
     Active Substance: RISPERIDONE
     Indication: SCHIZOPHRENIA
     Dosage: ALTHOUGH A MINORITY OF PARTICIPANTS NEEDED SUBSTANTIALLY HIGHERDOSAGES
     Route: 048

REACTIONS (6)
  - Dyskinesia [Unknown]
  - Hospitalisation [Unknown]
  - Drug effect decreased [Unknown]
  - Akathisia [Unknown]
  - Psychotic disorder [Unknown]
  - Treatment noncompliance [Unknown]
